FAERS Safety Report 6321768-3 (Version None)
Quarter: 2009Q3

REPORT INFORMATION
  Report Type: 
  Country: None (occurrence: None)
  Receive Date: 20090824
  Receipt Date: 20090811
  Transmission Date: 20100115
  Serious: Yes (Other)
  Sender: FDA-Public Use
  Company Number: GB-ROCHE-650204

PATIENT
  Age: 8 Year
  Sex: Male

DRUGS (3)
  1. TAMIFLU [Suspect]
     Route: 065
     Dates: start: 20090802, end: 20090806
  2. ACETAMINOPHEN [Concomitant]
     Dosage: DOSE: 250MG IN 5ML.
  3. BENADRYL ALLERGY RELIEF [Concomitant]
     Dosage: 5 TO 10MG GIVEN PRN DURING JULY 2009.
     Route: 065

REACTIONS (1)
  - DISSOCIATION [None]
